FAERS Safety Report 23161394 (Version 1)
Quarter: 2023Q4

REPORT INFORMATION
  Report Type: Spontaneous
  Country: US (occurrence: None)
  Receive Date: 20231106
  Receipt Date: 20231106
  Transmission Date: 20240110
  Serious: No
  Sender: FDA-Public Use
  Company Number: None

PATIENT
  Age: 43 Year
  Sex: Female
  Weight: 68.04 kg

DRUGS (1)
  1. XYLAZINE [Suspect]
     Active Substance: XYLAZINE

REACTIONS (2)
  - Pain [None]
  - Limb amputation [None]

NARRATIVE: CASE EVENT DATE: 20231101
